FAERS Safety Report 24121797 (Version 1)
Quarter: 2024Q3

REPORT INFORMATION
  Report Type: Spontaneous
  Country: US (occurrence: US)
  Receive Date: 20240722
  Receipt Date: 20240722
  Transmission Date: 20241017
  Serious: No
  Sender: SANOFI AVENTIS
  Company Number: US-SA-SAC20240716000943

PATIENT
  Sex: Female

DRUGS (1)
  1. DUPIXENT [Suspect]
     Active Substance: DUPILUMAB
     Indication: Dermatitis atopic
     Dosage: 600 MG, 1X
     Route: 058

REACTIONS (7)
  - Pruritus [Unknown]
  - Skin weeping [Unknown]
  - Blister [Unknown]
  - Dry skin [Unknown]
  - Malaise [Unknown]
  - Mental disorder [Unknown]
  - Joint dislocation [Unknown]
